FAERS Safety Report 17352429 (Version 2)
Quarter: 2020Q1

REPORT INFORMATION
  Report Type: Spontaneous
  Country: JP (occurrence: JP)
  Receive Date: 20200130
  Receipt Date: 20200310
  Transmission Date: 20200409
  Serious: Yes (Other)
  Sender: FDA-Public Use
  Company Number: JP-BEH-2020112231

PATIENT
  Age: 81 Year
  Sex: Male

DRUGS (3)
  1. ALBUMINAR-5 [Suspect]
     Active Substance: ALBUMIN HUMAN
     Dosage: 2 VIALS, TOT
     Route: 065
     Dates: start: 20191122, end: 20191127
  2. ALBUMINAR-25 [Suspect]
     Active Substance: ALBUMIN HUMAN
     Dosage: 2 VIALS, TOT
     Route: 065
     Dates: start: 20191122, end: 20191127
  3. ALBUMINAR-25 [Suspect]
     Active Substance: ALBUMIN HUMAN
     Dosage: 1 VIAL, TOT
     Route: 065
     Dates: start: 20191122, end: 20191127

REACTIONS (2)
  - Hepatitis C antibody positive [Unknown]
  - Suspected transmission of an infectious agent via product [Unknown]

NARRATIVE: CASE EVENT DATE: 20200120
